FAERS Safety Report 7537080-0 (Version None)
Quarter: 2011Q2

REPORT INFORMATION
  Report Type: 
  Country: None (occurrence: None)
  Receive Date: 20110609
  Receipt Date: 20110527
  Transmission Date: 20111010
  Serious: Yes (Hospitalization)
  Sender: FDA-Public Use
  Company Number: PHHY2011DE12014

PATIENT
  Sex: Female
  Weight: 82 kg

DRUGS (4)
  1. RAMIPRIL [Concomitant]
     Indication: HYPERTENSION
     Dosage: UNK
     Dates: start: 19800101
  2. ZOMETA [Suspect]
     Indication: PROPHYLAXIS
     Dosage: 4 MG, EVERY 4 WEEKS
     Route: 042
     Dates: start: 20091117, end: 20110309
  3. HYDROCHLOROTHIAZIDE [Concomitant]
     Indication: HYPERTENSION
     Dosage: UNK
     Dates: start: 20000101
  4. ANASTROZOLE [Concomitant]
     Dosage: UNK
     Dates: start: 20070801

REACTIONS (9)
  - BURSITIS [None]
  - PAIN [None]
  - DYSPNOEA [None]
  - SWELLING [None]
  - OSTEONECROSIS OF JAW [None]
  - ARTHRALGIA [None]
  - ABSCESS JAW [None]
  - ERYTHEMA [None]
  - GENERAL PHYSICAL HEALTH DETERIORATION [None]
